FAERS Safety Report 15812691 (Version 1)
Quarter: 2019Q1

REPORT INFORMATION
  Report Type: Spontaneous
  Country: US (occurrence: US)
  Receive Date: 20190110
  Receipt Date: 20190110
  Transmission Date: 20190417
  Serious: Yes (Hospitalization)
  Sender: FDA-Public Use
  Company Number: None

PATIENT
  Age: 68 Year
  Sex: Female

DRUGS (10)
  1. CELLCEPT [Suspect]
     Active Substance: MYCOPHENOLATE MOFETIL\MYCOPHENOLATE MOFETIL HYDROCHLORIDE
     Indication: LIVER TRANSPLANT
     Route: 048
     Dates: start: 20151118
  2. CALCITRIOL. [Concomitant]
     Active Substance: CALCITRIOL
  3. LEVOTHYROXIN [Concomitant]
     Active Substance: LEVOTHYROXINE
  4. METOPROL TAR [Concomitant]
  5. AMLODIPINE [Concomitant]
     Active Substance: AMLODIPINE BESYLATE
  6. DIOVAN [Concomitant]
     Active Substance: VALSARTAN
  7. FERROUS SULF [Concomitant]
     Active Substance: FERROUS SULFATE
  8. TACROLIMUS. [Concomitant]
     Active Substance: TACROLIMUS
  9. WARFARIN [Concomitant]
     Active Substance: WARFARIN
  10. IRON [Concomitant]
     Active Substance: IRON

REACTIONS (1)
  - Cardiac operation [None]

NARRATIVE: CASE EVENT DATE: 20181119
